FAERS Safety Report 6962177-3 (Version None)
Quarter: 2010Q3

REPORT INFORMATION
  Report Type: 
  Country: None (occurrence: None)
  Receive Date: 20100901
  Receipt Date: 20100901
  Transmission Date: 20110219
  Serious: No
  Sender: FDA-Public Use
  Company Number: None

PATIENT
  Sex: Male
  Weight: 92.3 kg

DRUGS (2)
  1. BUDEPRION XL 150MG MYLAN PHARMACEUTICALS [Suspect]
     Indication: ANXIETY
     Dosage: 150MG DAY BY MOUTH
     Route: 048
     Dates: start: 20100812, end: 20100823
  2. BUDEPRION XL 150MG MYLAN PHARMACEUTICALS [Suspect]
     Indication: TENSION
     Dosage: 150MG DAY BY MOUTH
     Route: 048
     Dates: start: 20100812, end: 20100823

REACTIONS (3)
  - ANXIETY [None]
  - PRODUCT SUBSTITUTION ISSUE [None]
  - TENSION [None]
